FAERS Safety Report 21465182 (Version 1)
Quarter: 2022Q4

REPORT INFORMATION
  Report Type: Spontaneous
  Country: US (occurrence: None)
  Receive Date: 20221014
  Receipt Date: 20221014
  Transmission Date: 20230113
  Serious: No
  Sender: FDA-Public Use
  Company Number: None

PATIENT
  Age: 55 Year
  Sex: Female
  Weight: 157 kg

DRUGS (1)
  1. PREDNISONE [Suspect]
     Active Substance: PREDNISONE
     Indication: Depression
     Dates: start: 20220816, end: 20220906

REACTIONS (3)
  - Tachycardia [None]
  - Mania [None]
  - Tachyphrenia [None]

NARRATIVE: CASE EVENT DATE: 20220906
